FAERS Safety Report 19328319 (Version 3)
Quarter: 2021Q3

REPORT INFORMATION
  Report Type: Report from Study
  Country: DE (occurrence: DE)
  Receive Date: 20210528
  Receipt Date: 20210727
  Transmission Date: 20211014
  Serious: No
  Sender: FDA-Public Use
  Company Number: DE-TAIHO ONCOLOGY  INC-IM-2020-00980

PATIENT
  Age: 56 Year
  Sex: Male
  Weight: 92 kg

DRUGS (2)
  1. LONSURF [Suspect]
     Active Substance: TIPIRACIL HYDROCHLORIDE\TRIFLURIDINE
     Dosage: 35 MG/M2, BID
     Route: 048
     Dates: start: 20190701, end: 20190712
  2. LONSURF [Suspect]
     Active Substance: TIPIRACIL HYDROCHLORIDE\TRIFLURIDINE
     Indication: ADENOCARCINOMA OF COLON
     Dosage: 35 MG/M2, BID
     Route: 048
     Dates: start: 20190304, end: 20190607

REACTIONS (2)
  - Asthenia [Recovered/Resolved]
  - Fatigue [Recovered/Resolved]

NARRATIVE: CASE EVENT DATE: 20190329
